FAERS Safety Report 5848162-3 (Version None)
Quarter: 2008Q3

REPORT INFORMATION
  Report Type: 
  Country: None (occurrence: None)
  Receive Date: 20080818
  Receipt Date: 20080808
  Transmission Date: 20090109
  Serious: Yes (Hospitalization)
  Sender: FDA-Public Use
  Company Number: A0742926A

PATIENT
  Age: 25 Year
  Sex: Male

DRUGS (4)
  1. COMBIVIR [Suspect]
     Indication: DRUG USE FOR UNKNOWN INDICATION
     Dosage: 150MG TWICE PER DAY
  2. SUSTIVA [Suspect]
     Dosage: 600MG PER DAY
  3. CLOMIPHENE CITRATE [Concomitant]
  4. SYNTHROID [Concomitant]

REACTIONS (3)
  - GAIT DISTURBANCE [None]
  - HYPOAESTHESIA [None]
  - VOMITING [None]
